FAERS Safety Report 5337511-0 (Version None)
Quarter: 2007Q2

REPORT INFORMATION
  Report Type: 
  Country: None (occurrence: None)
  Receive Date: 20070529
  Receipt Date: 20070521
  Transmission Date: 20071010
  Serious: Yes (Other)
  Sender: FDA-Public Use
  Company Number: US-AMGEN-KDL222425

PATIENT
  Sex: Female

DRUGS (8)
  1. ENBREL [Suspect]
     Indication: PSORIASIS
     Route: 058
     Dates: start: 20070421, end: 20070503
  2. BENICAR [Concomitant]
  3. CALCIUM WITH VITAMIN D [Concomitant]
  4. ESTRACE [Concomitant]
  5. NYSTATIN [Concomitant]
  6. TOPROL-XL [Concomitant]
  7. VYTORIN [Concomitant]
  8. ZYRTEC [Concomitant]

REACTIONS (5)
  - CHEST DISCOMFORT [None]
  - DIZZINESS [None]
  - INJECTION SITE ERYTHEMA [None]
  - INJECTION SITE RASH [None]
  - INJECTION SITE URTICARIA [None]
